FAERS Safety Report 11848907 (Version 1)
Quarter: 2015Q4

REPORT INFORMATION
  Report Type: Spontaneous
  Country: US (occurrence: None)
  Receive Date: 20151217
  Receipt Date: 20151217
  Transmission Date: 20160305
  Serious: No
  Sender: FDA-Public Use
  Company Number: None

PATIENT
  Age: 44 Year
  Sex: Male

DRUGS (1)
  1. JADENU [Suspect]
     Active Substance: DEFERASIROX
     Indication: BLOOD IRON DECREASED
     Route: 048
     Dates: start: 20150702, end: 20151118

REACTIONS (1)
  - Blood iron increased [None]

NARRATIVE: CASE EVENT DATE: 20151118
